FAERS Safety Report 25033379 (Version 1)
Quarter: 2025Q1

REPORT INFORMATION
  Report Type: Spontaneous
  Country: FR (occurrence: FR)
  Receive Date: 20250303
  Receipt Date: 20250303
  Transmission Date: 20250409
  Serious: Yes (Hospitalization)
  Sender: ELI LILLY AND COMPANY
  Company Number: None

PATIENT
  Age: 36 Year
  Sex: Male
  Weight: 74 kg

DRUGS (1)
  1. FLUOXETINE HYDROCHLORIDE [Suspect]
     Active Substance: FLUOXETINE HYDROCHLORIDE
     Indication: Depression
     Dosage: 20 MG, DAILY
     Route: 048
     Dates: start: 20200904, end: 20201008

REACTIONS (1)
  - Reversible cerebral vasoconstriction syndrome [Recovered/Resolved]

NARRATIVE: CASE EVENT DATE: 20200906
